FAERS Safety Report 13766853 (Version 7)
Quarter: 2017Q3

REPORT INFORMATION
  Report Type: Report from Study
  Country: CA (occurrence: CA)
  Receive Date: 20170719
  Receipt Date: 20170912
  Transmission Date: 20171127
  Serious: Yes (Hospitalization, Other)
  Sender: FDA-Public Use
  Company Number: CA-ROCHE-1956322

PATIENT
  Age: 86 Year
  Sex: Female

DRUGS (14)
  1. ESBRIET [Suspect]
     Active Substance: PIRFENIDONE
     Indication: IDIOPATHIC PULMONARY FIBROSIS
     Route: 048
     Dates: start: 20170620
  2. FUROSEMIDE. [Concomitant]
     Active Substance: FUROSEMIDE
  3. HUMALOG [Concomitant]
     Active Substance: INSULIN LISPRO
  4. CRESTOR [Concomitant]
     Active Substance: ROSUVASTATIN CALCIUM
  5. ESBRIET [Suspect]
     Active Substance: PIRFENIDONE
     Dosage: 534 MG- 267 MG - 267 MG
     Route: 048
     Dates: start: 20170627
  6. ELIQUIS [Concomitant]
     Active Substance: APIXABAN
  7. DIGOXIN. [Concomitant]
     Active Substance: DIGOXIN
  8. BISOPROLOL [Concomitant]
     Active Substance: BISOPROLOL
  9. TRADJENTA [Concomitant]
     Active Substance: LINAGLIPTIN
  10. ESBRIET [Suspect]
     Active Substance: PIRFENIDONE
     Dosage: 534 MG- 534 MG - 267 MG
     Route: 048
     Dates: start: 20170704, end: 201707
  11. SERTRALINE [Concomitant]
     Active Substance: SERTRALINE HYDROCHLORIDE
  12. ESBRIET [Suspect]
     Active Substance: PIRFENIDONE
     Route: 048
     Dates: start: 2017
  13. ESBRIET [Suspect]
     Active Substance: PIRFENIDONE
     Route: 048
     Dates: start: 201707, end: 201708
  14. SPIRONOLACTONE. [Concomitant]
     Active Substance: SPIRONOLACTONE

REACTIONS (15)
  - Fall [Unknown]
  - Decreased appetite [Not Recovered/Not Resolved]
  - Joint swelling [Recovering/Resolving]
  - Diarrhoea [Recovered/Resolved]
  - Depression [Not Recovered/Not Resolved]
  - Drug ineffective [Unknown]
  - Dyspnoea exertional [Unknown]
  - Peripheral swelling [Recovering/Resolving]
  - Fatigue [Recovering/Resolving]
  - Cardiac failure congestive [Unknown]
  - Compression fracture [Unknown]
  - Nausea [Recovered/Resolved]
  - Heart rate increased [Unknown]
  - Joint swelling [Not Recovered/Not Resolved]
  - Cough [Not Recovered/Not Resolved]

NARRATIVE: CASE EVENT DATE: 2017
